FAERS Safety Report 22330976 (Version 1)
Quarter: 2023Q2

REPORT INFORMATION
  Report Type: Other
  Country: US (occurrence: None)
  Receive Date: 20230517
  Receipt Date: 20230517
  Transmission Date: 20230722
  Serious: No
  Sender: FDA-Public Use
  Company Number: US-ROCHE-3349126

PATIENT
  Age: 63 Year
  Sex: Male
  Weight: 74.91 kg

DRUGS (23)
  1. OCREVUS [Suspect]
     Active Substance: OCRELIZUMAB
     Indication: Relapsing multiple sclerosis
     Dosage: INFUSE 300MG IV ON DAY 1+15, INFUSE 600MG INTRAVENOUSLY EVERY 6 MONTH(S),
     Route: 042
     Dates: start: 20190110
  2. MODAFINIL [Concomitant]
     Active Substance: MODAFINIL
  3. ONDANSETRON [Concomitant]
     Active Substance: ONDANSETRON
  4. OXYCODONE [Concomitant]
     Active Substance: OXYCODONE
  5. ZOLPIDEM [Concomitant]
     Active Substance: ZOLPIDEM TARTRATE
  6. TRAMADOL [Concomitant]
     Active Substance: TRAMADOL
  7. TIZANIDINE [Concomitant]
     Active Substance: TIZANIDINE
  8. TAMSULOSIN [Concomitant]
     Active Substance: TAMSULOSIN
  9. ROSUVASTATIN [Concomitant]
     Active Substance: ROSUVASTATIN
  10. ROPINIROLE [Concomitant]
     Active Substance: ROPINIROLE
  11. PREGABALIN [Concomitant]
     Active Substance: PREGABALIN
  12. PREDNISONE [Concomitant]
     Active Substance: PREDNISONE
  13. OXCARBAZEPINE [Concomitant]
     Active Substance: OXCARBAZEPINE
  14. METOPROLOL SUCCINATE [Concomitant]
     Active Substance: METOPROLOL SUCCINATE
  15. FLUTICASONE PROPIONATE [Concomitant]
     Active Substance: FLUTICASONE PROPIONATE
  16. FERROUS SULFATE [Concomitant]
     Active Substance: FERROUS SULFATE
  17. ELIQUIS [Concomitant]
     Active Substance: APIXABAN
  18. DULOXETINE [Concomitant]
     Active Substance: DULOXETINE
  19. DOCUSATE SODIUM [Concomitant]
     Active Substance: DOCUSATE SODIUM
  20. DILTIAZEM [Concomitant]
     Active Substance: DILTIAZEM
  21. CHOLECALCIFEROL [Concomitant]
     Active Substance: CHOLECALCIFEROL
  22. BACLOFEN [Concomitant]
     Active Substance: BACLOFEN
  23. ALBUTEROL [Concomitant]
     Active Substance: ALBUTEROL

REACTIONS (8)
  - SARS-CoV-2 test positive [Recovered/Resolved]
  - Pain [Recovered/Resolved]
  - Sinus congestion [Recovered/Resolved]
  - Oropharyngeal pain [Recovered/Resolved]
  - Nasal congestion [Recovered/Resolved]
  - Cartilage injury [Not Recovered/Not Resolved]
  - Arthropathy [Not Recovered/Not Resolved]
  - Amnesia [Not Recovered/Not Resolved]

NARRATIVE: CASE EVENT DATE: 20190801
